FAERS Safety Report 23551907 (Version 1)
Quarter: 2024Q1

REPORT INFORMATION
  Report Type: Spontaneous
  Country: US (occurrence: US)
  Receive Date: 20240222
  Receipt Date: 20240222
  Transmission Date: 20240410
  Serious: No
  Sender: FDA-Public Use
  Company Number: US-BIOVITRUM-2024-US-002655

PATIENT
  Age: 5 Month
  Sex: Female
  Weight: 6.35 kg

DRUGS (4)
  1. SYNAGIS [Suspect]
     Active Substance: PALIVIZUMAB
     Indication: Premature baby
     Dosage: ONCE A MONTH
     Route: 030
  2. SYNAGIS [Suspect]
     Active Substance: PALIVIZUMAB
     Indication: Bronchopulmonary dysplasia
  3. SYNAGIS [Suspect]
     Active Substance: PALIVIZUMAB
     Indication: Dependence on oxygen therapy
  4. SYNAGIS [Suspect]
     Active Substance: PALIVIZUMAB
     Indication: Failure to thrive

REACTIONS (1)
  - Pyrexia [Recovered/Resolved]

NARRATIVE: CASE EVENT DATE: 20231222
